FAERS Safety Report 7790608-8 (Version None)
Quarter: 2011Q3

REPORT INFORMATION
  Report Type: 
  Country: None (occurrence: None)
  Receive Date: 20110930
  Receipt Date: 20110923
  Transmission Date: 20111222
  Serious: Yes (Life-Threatening, Other)
  Sender: FDA-Public Use
  Company Number: PHHY2011GB47290

PATIENT
  Age: 74 Year
  Sex: Female

DRUGS (5)
  1. ATENOLOL [Suspect]
  2. TENECTEPLASE [Suspect]
  3. CLOPIDOGREL [Suspect]
     Indication: PERICARDITIS
  4. ACETYLSALICYLIC ACID SRT [Suspect]
     Indication: PERICARDITIS
  5. HEPARIN [Suspect]

REACTIONS (12)
  - HEART SOUNDS ABNORMAL [None]
  - PULSELESS ELECTRICAL ACTIVITY [None]
  - PERICARDIAL HAEMORRHAGE [None]
  - PERICARDIAL EFFUSION [None]
  - PNEUMONIA [None]
  - PLEURAL EFFUSION [None]
  - TACHYCARDIA [None]
  - ANURIA [None]
  - SHOCK [None]
  - CARDIAC TAMPONADE [None]
  - HYPOTENSION [None]
  - CARDIAC ARREST [None]
